FAERS Safety Report 8141643-1 (Version None)
Quarter: 2012Q1

REPORT INFORMATION
  Report Type: 
  Country: None (occurrence: None)
  Receive Date: 20120103
  Receipt Date: 20111022
  Transmission Date: 20120608
  Serious: No
  Sender: FDA-Public Use
  Company Number: AE-2011-002604

PATIENT
  Age: 59 Year
  Sex: Male
  Weight: 58.9676 kg

DRUGS (4)
  1. INCIVEK [Suspect]
     Dosage: (3 IN 1 D),ORAL
     Route: 048
     Dates: start: 20110818, end: 20110924
  2. RIBAVIRIN [Concomitant]
  3. PROCRIT [Concomitant]
  4. PEGASYS [Concomitant]

REACTIONS (6)
  - VOMITING [None]
  - ABDOMINAL PAIN [None]
  - HAEMATOCHEZIA [None]
  - NAUSEA [None]
  - HEADACHE [None]
  - FATIGUE [None]
